FAERS Safety Report 9154965 (Version 4)
Quarter: 2013Q3

REPORT INFORMATION
  Report Type: Report from Study
  Country: FR (occurrence: FR)
  Receive Date: 20130311
  Receipt Date: 20130718
  Transmission Date: 20140515
  Serious: Yes (Hospitalization)
  Sender: FDA-Public Use
  Company Number: FR-ROCHE-1199890

PATIENT
  Age: 57 Year
  Sex: Male

DRUGS (8)
  1. PEG-INTERFERON ALFA 2A [Suspect]
     Indication: HEPATITIS C
     Route: 058
     Dates: start: 20121211
  2. RIBAVIRIN [Suspect]
     Indication: HEPATITIS C
     Route: 048
     Dates: start: 20121211
  3. TELAPREVIR [Suspect]
     Indication: HEPATITIS C
     Route: 048
     Dates: start: 20121211
  4. METHADONE [Concomitant]
     Route: 048
  5. DIAZEPAM [Concomitant]
     Indication: ANXIETY
     Route: 048
  6. TIANEPTINE [Concomitant]
     Indication: BIPOLAR DISORDER
     Route: 048
  7. TRIMIPRAMINE [Concomitant]
     Indication: BIPOLAR DISORDER
     Route: 048
  8. NEORECORMON [Concomitant]
     Indication: ANAEMIA
     Route: 058

REACTIONS (1)
  - General physical health deterioration [Recovered/Resolved]
